FAERS Safety Report 6594956-9 (Version None)
Quarter: 2010Q1

REPORT INFORMATION
  Report Type: 
  Country: None (occurrence: None)
  Receive Date: 20100218
  Receipt Date: 20100218
  Transmission Date: 20100710
  Serious: No
  Sender: FDA-Public Use
  Company Number: None

PATIENT
  Age: 37 Year
  Sex: Male
  Weight: 66.2252 kg

DRUGS (3)
  1. LISINOPRIL [Suspect]
     Dosage: 20MG Q M PO
     Route: 048
     Dates: start: 20080715, end: 20080828
  2. DIPHENHYDRAMINE HCL [Concomitant]
  3. FUROSEMIDE [Concomitant]

REACTIONS (4)
  - ARRHYTHMIA [None]
  - BLOOD CREATININE INCREASED [None]
  - BLOOD POTASSIUM ABNORMAL [None]
  - BLOOD UREA INCREASED [None]
